FAERS Safety Report 7217108-8 (Version None)
Quarter: 2011Q1

REPORT INFORMATION
  Report Type: 
  Country: None (occurrence: None)
  Receive Date: 20110110
  Receipt Date: 20101231
  Transmission Date: 20110831
  Serious: Yes (Hospitalization)
  Sender: FDA-Public Use
  Company Number: FR-SANOFI-AVENTIS-2011SA000314

PATIENT
  Age: 37 Year
  Sex: Male

DRUGS (13)
  1. LOVENOX [Suspect]
     Indication: THROMBOSIS PROPHYLAXIS
     Route: 058
     Dates: start: 20101125, end: 20101207
  2. AUGMENTIN '125' [Concomitant]
     Dates: start: 20101126, end: 20101202
  3. SOLU-MEDROL [Concomitant]
     Dates: start: 20101126, end: 20101126
  4. ESOMEPRAZOLE [Suspect]
     Route: 042
     Dates: start: 20101125, end: 20101207
  5. HYPNOVEL [Concomitant]
     Dates: start: 20101125, end: 20101203
  6. SEVOFLURANE [Concomitant]
     Dates: start: 20101205, end: 20101206
  7. HALDOL [Suspect]
     Route: 042
     Dates: start: 20101129, end: 20101209
  8. NICOTINE [Concomitant]
     Route: 062
     Dates: start: 20101126
  9. SUFENTANIL [Concomitant]
     Dates: start: 20101206
  10. AMIKACIN [Suspect]
     Route: 042
     Dates: start: 20101204, end: 20101205
  11. CLAVENTIN [Concomitant]
     Dates: start: 20101203
  12. PROFENID [Concomitant]
     Dates: start: 20101125, end: 20101126
  13. CLONIDINE HCL [Concomitant]
     Dates: start: 20101206

REACTIONS (1)
  - RENAL FAILURE ACUTE [None]
